FAERS Safety Report 6302805-9 (Version None)
Quarter: 2009Q3

REPORT INFORMATION
  Report Type: 
  Country: None (occurrence: None)
  Receive Date: 20090810
  Receipt Date: 20090701
  Transmission Date: 20100115
  Serious: No
  Sender: FDA-Public Use
  Company Number: A0795021A

PATIENT
  Age: 9 Year
  Sex: Male

DRUGS (2)
  1. ALTABAX [Suspect]
     Indication: IMPETIGO
     Dosage: 1APP TWICE PER DAY
     Route: 061
     Dates: start: 20090629
  2. ANTIBIOTIC [Suspect]
     Indication: IMPETIGO
     Route: 048

REACTIONS (2)
  - IMPETIGO [None]
  - LYMPHADENOPATHY [None]
